FAERS Safety Report 6768827-9 (Version None)
Quarter: 2010Q2

REPORT INFORMATION
  Report Type: 
  Country: None (occurrence: None)
  Receive Date: 20100611
  Receipt Date: 20100531
  Transmission Date: 20101027
  Serious: Yes (Other)
  Sender: FDA-Public Use
  Company Number: 013275

PATIENT

DRUGS (1)
  1. LEVETIRACETAM [Suspect]
     Indication: EPILEPSY
     Dosage: (5MG/KG INITIAL DOSE) ; (INCREASING BY 5MG/KG EVERY FORTNIGHT)

REACTIONS (11)
  - AGGRESSION [None]
  - APNOEIC ATTACK [None]
  - ATAXIA [None]
  - CONVULSION [None]
  - DIZZINESS [None]
  - GRAND MAL CONVULSION [None]
  - IRRITABILITY [None]
  - PARTIAL SEIZURES WITH SECONDARY GENERALISATION [None]
  - PSYCHOTIC DISORDER [None]
  - SOMNOLENCE [None]
  - STATUS EPILEPTICUS [None]
